FAERS Safety Report 8204501-X (Version None)
Quarter: 2012Q1

REPORT INFORMATION
  Report Type: 
  Country: None (occurrence: None)
  Receive Date: 20120309
  Receipt Date: 20120222
  Transmission Date: 20120608
  Serious: Yes (Hospitalization)
  Sender: FDA-Public Use
  Company Number: SAN_00060_2012

PATIENT
  Age: 82 Year
  Sex: Female

DRUGS (2)
  1. METFORMIN HCL [Suspect]
     Indication: TYPE 2 DIABETES MELLITUS
     Dosage: 850 MG, QD
  2. COUMADIN [Concomitant]

REACTIONS (11)
  - METABOLIC ACIDOSIS [None]
  - LACTIC ACIDOSIS [None]
  - VOMITING [None]
  - ACUTE RESPIRATORY DISTRESS SYNDROME [None]
  - RENAL FAILURE ACUTE [None]
  - NAUSEA [None]
  - HYPOVOLAEMIC SHOCK [None]
  - DEHYDRATION [None]
  - DIARRHOEA [None]
  - DISSEMINATED INTRAVASCULAR COAGULATION [None]
  - MENTAL STATUS CHANGES [None]
